FAERS Safety Report 14178356 (Version 3)
Quarter: 2017Q4

REPORT INFORMATION
  Report Type: Spontaneous
  Country: DE (occurrence: DE)
  Receive Date: 20171110
  Receipt Date: 20171230
  Transmission Date: 20180321
  Serious: Yes (Other)
  Sender: FDA-Public Use
  Company Number: DE-AMGEN-DEUSL2017166934

PATIENT
  Age: 66 Year
  Sex: Female
  Weight: 55 kg

DRUGS (5)
  1. REPATHA [Suspect]
     Active Substance: EVOLOCUMAB
     Indication: CORONARY ARTERY DISEASE
  2. METOPROLOL. [Concomitant]
     Active Substance: METOPROLOL
     Indication: CORONARY ARTERY DISEASE
     Dosage: 47.5 UNK, QD
  3. REPATHA [Suspect]
     Active Substance: EVOLOCUMAB
     Indication: PERIPHERAL ARTERIAL OCCLUSIVE DISEASE
     Dosage: 140 MG, UNK
     Route: 058
     Dates: start: 20170213, end: 20170828
  4. REPATHA [Suspect]
     Active Substance: EVOLOCUMAB
     Indication: HYPERLIPIDAEMIA
  5. CANDESARTAN. [Concomitant]
     Active Substance: CANDESARTAN
     Indication: CORONARY ARTERY DISEASE
     Dosage: 8 MG, QD

REACTIONS (3)
  - Dyspnoea at rest [Recovered/Resolved]
  - Eczema vesicular [Recovered/Resolved]
  - Dyspnoea exertional [Recovered/Resolved]

NARRATIVE: CASE EVENT DATE: 20170717
